FAERS Safety Report 23654030 (Version 1)
Quarter: 2024Q1

REPORT INFORMATION
  Report Type: Spontaneous
  Country: US (occurrence: None)
  Receive Date: 20240319
  Receipt Date: 20240319
  Transmission Date: 20240410
  Serious: No
  Sender: FDA-Public Use
  Company Number: None

PATIENT
  Sex: Male

DRUGS (3)
  1. VONVENDI [Suspect]
     Active Substance: VON WILLEBRAND FACTOR (RECOMBINANT)
     Indication: Von Willebrand^s disease
     Dosage: 5000UNITS AS NEEDED INTRAVENOUS
     Route: 042
     Dates: start: 202402
  2. VONVENDI [Suspect]
     Active Substance: VON WILLEBRAND FACTOR (RECOMBINANT)
     Indication: Von Willebrand^s disease
     Dosage: 5000UNITS AS NEEDED INTRAVENOUS?
     Route: 042
     Dates: start: 202402
  3. SPRYCEL [Concomitant]
     Active Substance: DASATINIB

REACTIONS (1)
  - Angina pectoris [None]
